FAERS Safety Report 9163728 (Version 2)
Quarter: 2013Q2

REPORT INFORMATION
  Report Type: Spontaneous
  Country: AT (occurrence: AT)
  Receive Date: 20130314
  Receipt Date: 20130409
  Transmission Date: 20140414
  Serious: Yes (Death, Hospitalization)
  Sender: FDA-Public Use
  Company Number: AT-ACTELION-A-CH2013-80383

PATIENT
  Age: 70 Year
  Sex: Male

DRUGS (2)
  1. TRACLEER [Suspect]
     Indication: PULMONARY ARTERIAL HYPERTENSION
     Dosage: 125 MG, UNK
     Route: 048
     Dates: start: 201108
  2. REMODULIN [Concomitant]
     Dosage: UNK
     Dates: start: 201012

REACTIONS (3)
  - Sepsis [Fatal]
  - Pneumonia [Fatal]
  - Drug intolerance [Unknown]
